FAERS Safety Report 5910337-2 (Version None)
Quarter: 2008Q4

REPORT INFORMATION
  Report Type: 
  Country: None (occurrence: None)
  Receive Date: 20081007
  Receipt Date: 20071203
  Transmission Date: 20090506
  Serious: Yes (Other)
  Sender: FDA-Public Use
  Company Number: US-ASTRAZENECA-2007UW27549

PATIENT
  Age: 72 Year
  Sex: Female
  Weight: 95.3 kg

DRUGS (5)
  1. ARIMIDEX [Suspect]
     Indication: BREAST CANCER
     Route: 048
     Dates: start: 20071001
  2. AMARYL [Concomitant]
  3. TOPROL-XL [Concomitant]
  4. MAXID [Concomitant]
  5. REGLAN [Concomitant]

REACTIONS (3)
  - ASTHENIA [None]
  - HEAD DISCOMFORT [None]
  - PAIN [None]
